FAERS Safety Report 8721255 (Version 2)
Quarter: 2015Q2

REPORT INFORMATION
  Report Type: Report from Study
  Country: BR (occurrence: BR)
  Receive Date: 20120813
  Receipt Date: 20150525
  Transmission Date: 20150821
  Serious: Yes (Other)
  Sender: FDA-Public Use
  Company Number: BR-ROCHE-1099530

PATIENT
  Sex: Female
  Weight: 57 kg

DRUGS (8)
  1. PONDERA [Concomitant]
     Active Substance: PAROXETINE HYDROCHLORIDE
     Route: 065
  2. GLIFAGE [Concomitant]
     Active Substance: METFORMIN HYDROCHLORIDE
     Route: 065
  3. HYDROCHLOROTHIAZIDE. [Concomitant]
     Active Substance: HYDROCHLOROTHIAZIDE
     Route: 065
  4. METHOTREXATE [Concomitant]
     Active Substance: METHOTREXATE
     Route: 065
  5. ENALAPRIL MALEATE. [Concomitant]
     Active Substance: ENALAPRIL MALEATE
     Route: 065
  6. MABTHERA [Suspect]
     Active Substance: RITUXIMAB
     Indication: RHEUMATOID ARTHRITIS
     Route: 042
     Dates: start: 20100301, end: 20120711
  7. SINVASCOR [Concomitant]
     Active Substance: SIMVASTATIN
     Route: 065
  8. PROPRANOLOL HYDROCHLORIDE. [Concomitant]
     Active Substance: PROPRANOLOL HYDROCHLORIDE
     Route: 065

REACTIONS (7)
  - Anaphylactic shock [Unknown]
  - Self injurious behaviour [Unknown]
  - Musculoskeletal stiffness [Unknown]
  - Tachycardia [Unknown]
  - Infection [Not Recovered/Not Resolved]
  - Cough [Not Recovered/Not Resolved]
  - Sinusitis [Not Recovered/Not Resolved]
